FAERS Safety Report 4740740-8 (Version None)
Quarter: 2005Q3

REPORT INFORMATION
  Report Type: 
  Country: None (occurrence: None)
  Receive Date: 20050810
  Receipt Date: 20050729
  Transmission Date: 20060218
  Serious: Yes (Death)
  Sender: FDA-Public Use
  Company Number: US-JNJFOC-20050800496

PATIENT
  Sex: Male

DRUGS (4)
  1. TOPAMAX [Suspect]
     Route: 048
  2. CARBATROL [Concomitant]
     Dosage: (300 MG DAILY IN MORNING AND 400 MG DAILY AT NIGHT)
     Route: 048
  3. KEPPRA [Concomitant]
     Route: 048
  4. ABILIFY [Concomitant]
     Dosage: (1CC IN MORNING AND 2CC AT NIGHT)
     Route: 048

REACTIONS (2)
  - ASPIRATION [None]
  - EPISTAXIS [None]
